FAERS Safety Report 10328585 (Version 1)
Quarter: 2014Q3

REPORT INFORMATION
  Report Type: Spontaneous
  Country: US (occurrence: US)
  Receive Date: 20140721
  Receipt Date: 20140721
  Transmission Date: 20150326
  Serious: Yes (Other)
  Sender: FDA-Public Use
  Company Number: US-ELI_LILLY_AND_COMPANY-US201407003896

PATIENT
  Age: 73 Year
  Sex: Female

DRUGS (15)
  1. VENLAFAXINE [Concomitant]
     Active Substance: VENLAFAXINE HYDROCHLORIDE
  2. ALBUTEROL                          /00139501/ [Concomitant]
     Active Substance: ALBUTEROL
  3. VITAMIN D                          /00107901/ [Concomitant]
     Active Substance: ERGOCALCIFEROL
  4. DETROL [Concomitant]
     Active Substance: TOLTERODINE TARTRATE
  5. TORSEMIDE. [Concomitant]
     Active Substance: TORSEMIDE
  6. CALCIUM [Concomitant]
     Active Substance: CALCIUM
  7. AMLODIPINE [Concomitant]
     Active Substance: AMLODIPINE BESYLATE
  8. COATED ASPIRIN [Concomitant]
  9. NITROSTAT [Concomitant]
     Active Substance: NITROGLYCERIN
  10. NEXIUM [Concomitant]
     Active Substance: ESOMEPRAZOLE MAGNESIUM
  11. ATORVASTATIN [Concomitant]
     Active Substance: ATORVASTATIN
  12. METOPROLOL [Concomitant]
     Active Substance: METOPROLOL
  13. EFFIENT [Suspect]
     Active Substance: PRASUGREL HYDROCHLORIDE
     Indication: STENT PLACEMENT
     Dosage: 10 MG, QD
     Route: 048
     Dates: start: 201404
  14. LOSARTAN [Concomitant]
     Active Substance: LOSARTAN
  15. MULTIVITAMINS [Concomitant]
     Active Substance: VITAMINS

REACTIONS (2)
  - Lumbar vertebral fracture [Unknown]
  - Fall [Unknown]

NARRATIVE: CASE EVENT DATE: 20140624
